FAERS Safety Report 23433571 (Version 1)
Quarter: 2024Q1

REPORT INFORMATION
  Report Type: Spontaneous
  Country: US (occurrence: US)
  Receive Date: 20240123
  Receipt Date: 20240123
  Transmission Date: 20240409
  Serious: No
  Sender: FDA-Public Use
  Company Number: US-PFIZER INC-PV202400009806

PATIENT
  Age: 38 Year
  Sex: Female

DRUGS (1)
  1. NURTEC ODT [Suspect]
     Active Substance: RIMEGEPANT SULFATE
     Dosage: DISSOLVE 1 TAB ON OR UNDER THE TONGUE ONCE A DAY AS NEEDED. DO NOT TAKE MORE THAN 1 TAB IN 24 HRS
     Route: 048

REACTIONS (1)
  - Drug ineffective [Unknown]
